FAERS Safety Report 23816036 (Version 1)
Quarter: 2024Q2

REPORT INFORMATION
  Report Type: Spontaneous
  Country: US (occurrence: None)
  Receive Date: 20240502
  Receipt Date: 20240502
  Transmission Date: 20240715
  Serious: Yes (Life-Threatening, Hospitalization, Disabling, Other)
  Sender: FDA-Public Use
  Company Number: None

PATIENT
  Age: 67 Year
  Sex: Male
  Weight: 83.25 kg

DRUGS (10)
  1. SERTRALINE [Suspect]
     Active Substance: SERTRALINE HYDROCHLORIDE
     Indication: Depression
     Route: 048
     Dates: start: 20230501, end: 20230814
  2. ROSUVASTATIN [Concomitant]
     Active Substance: ROSUVASTATIN
  3. ESOMEPRAZOLE [Concomitant]
     Active Substance: ESOMEPRAZOLE
  4. DULOXETINE [Concomitant]
     Active Substance: DULOXETINE
  5. LISINOPRIL [Concomitant]
     Active Substance: LISINOPRIL
  6. BACLOFEN [Concomitant]
     Active Substance: BACLOFEN
  7. PREGABALIN [Concomitant]
     Active Substance: PREGABALIN
  8. cbq10 [Concomitant]
  9. MULTI-VITAMIN [Concomitant]
     Active Substance: .ALPHA.-TOCOPHEROL ACETATE, DL-\ASCORBIC ACID\CYANOCOBALAMIN\FLUORIDE ION\FOLIC ACID\NIACIN\PYRIDOXI
  10. VITAMIN D [Concomitant]
     Active Substance: VITAMIN D NOS

REACTIONS (15)
  - Hypoaesthesia [None]
  - Therapy change [None]
  - Rash [None]
  - Tremor [None]
  - Insomnia [None]
  - Dysphagia [None]
  - Bruxism [None]
  - Irritability [None]
  - Electric shock sensation [None]
  - Atrial fibrillation [None]
  - Brain injury [None]
  - Decreased appetite [None]
  - Tardive dyskinesia [None]
  - Erectile dysfunction [None]
  - Impaired quality of life [None]

NARRATIVE: CASE EVENT DATE: 20230501
